FAERS Safety Report 8857661 (Version 1)
Quarter: 2012Q4

REPORT INFORMATION
  Report Type: 
  Country: US (occurrence: US)
  Receive Date: 20121024
  Receipt Date: 20121024
  Transmission Date: 20130627
  Serious: No
  Sender: FDA-Public Use
  Company Number: US-PFIZER INC-2012265346

PATIENT
  Age: 43 Year
  Sex: Female
  Weight: 58.96 kg

DRUGS (6)
  1. GABAPENTIN [Suspect]
     Dosage: UNK
  2. NAPROXEN [Concomitant]
     Dosage: UNK, 2x/day
  3. LORATADINE [Concomitant]
     Indication: HYPERSENSITIVITY
     Dosage: UNK
  4. PANTOPRAZOLE [Concomitant]
     Dosage: UNK
  5. FLUTICASONE [Concomitant]
     Indication: HYPERSENSITIVITY
     Dosage: UNK
  6. QVAR [Concomitant]
     Indication: ASTHMA
     Dosage: UNK, 2x/day

REACTIONS (1)
  - Drug ineffective [Unknown]
